FAERS Safety Report 13141609 (Version 1)
Quarter: 2017Q1

REPORT INFORMATION
  Report Type: Spontaneous
  Country: CA (occurrence: CA)
  Receive Date: 20170124
  Receipt Date: 20170124
  Transmission Date: 20170428
  Serious: Yes (Other)
  Sender: FDA-Public Use
  Company Number: CA-SEPTODONT-201703800

PATIENT
  Age: 57 Year
  Sex: Female

DRUGS (1)
  1. SEPTANEST N ARTICAINE HYDROCHLORIDE, EPINEPHRINE BITARTRATE [Suspect]
     Active Substance: ARTICAINE HYDROCHLORIDE\EPINEPHRINE BITARTRATE
     Indication: LOCAL ANAESTHESIA
     Dosage: 2 CARPULES QUAD 4 IANB AND 1/4 CARPULE LONG BUCCAL WITH 30G 25MM NEEDLE
     Route: 004
     Dates: start: 20130715, end: 20130715

REACTIONS (10)
  - Malaise [Recovered/Resolved]
  - Vision blurred [Recovered/Resolved]
  - Ophthalmoplegia [Recovered/Resolved]
  - Hypoaesthesia [Recovered/Resolved]
  - Feeling drunk [Recovered/Resolved]
  - Hypersensitivity [Recovered/Resolved]
  - Disorientation [Recovered/Resolved]
  - Facial paralysis [Recovered/Resolved]
  - Paraesthesia [Recovered/Resolved]
  - Somnolence [Recovered/Resolved]

NARRATIVE: CASE EVENT DATE: 20130715
